FAERS Safety Report 12232969 (Version 2)
Quarter: 2016Q2

REPORT INFORMATION
  Report Type: Report from Study
  Country: US (occurrence: US)
  Receive Date: 20160403
  Receipt Date: 20160525
  Transmission Date: 20160815
  Serious: Yes (Other)
  Sender: FDA-Public Use
  Company Number: US-AMGEN-USASL2016039212

PATIENT
  Age: 56 Year
  Sex: Female

DRUGS (1)
  1. ENBREL [Suspect]
     Active Substance: ETANERCEPT
     Indication: RHEUMATOID ARTHRITIS
     Dosage: 50 MG, QWK
     Route: 065
     Dates: start: 2014

REACTIONS (6)
  - Lung infection [Unknown]
  - Mobility decreased [Unknown]
  - Hypersensitivity [Unknown]
  - Pain [Unknown]
  - Fatigue [Unknown]
  - Lung disorder [Unknown]

NARRATIVE: CASE EVENT DATE: 2014
